FAERS Safety Report 4714712-3 (Version None)
Quarter: 2005Q3

REPORT INFORMATION
  Report Type: 
  Country: None (occurrence: None)
  Receive Date: 20050712
  Receipt Date: 20050630
  Transmission Date: 20060218
  Serious: Yes (Hospitalization)
  Sender: FDA-Public Use
  Company Number: RHO/05/04/FRA

PATIENT
  Age: 23 Year
  Sex: Female

DRUGS (4)
  1. RHOPHYLAC (ANTI-D IMMUNOGLOBULIN) [Suspect]
     Indication: PROPHYLAXIS
     Dosage: 200 UG, ONCE, I.M.
     Route: 030
     Dates: start: 20050628, end: 20050628
  2. RHOPHYLAC (ANTI-D IMMUNOGLOBULIN) [Suspect]
     Indication: RHESUS INCOMPATIBILITY
     Dosage: 200 UG, ONCE, I.M.
     Route: 030
     Dates: start: 20050628, end: 20050628
  3. AMOXICILLIN [Concomitant]
  4. UTROGESTAN (PROGESTERONE) [Concomitant]

REACTIONS (8)
  - DRUG EXPOSURE DURING PREGNANCY [None]
  - DYSPNOEA [None]
  - ERYTHEMA [None]
  - HYPOAESTHESIA [None]
  - MALAISE [None]
  - NAUSEA [None]
  - THROAT IRRITATION [None]
  - VERTIGO [None]
